FAERS Safety Report 9305739 (Version 1)
Quarter: 2013Q2

REPORT INFORMATION
  Report Type: Spontaneous
  Country: US (occurrence: None)
  Receive Date: 20130522
  Receipt Date: 20130522
  Transmission Date: 20140414
  Serious: No
  Sender: FDA-Public Use
  Company Number: None

PATIENT
  Sex: 0
  Weight: 48.08 kg

DRUGS (2)
  1. VALIUM [Suspect]
     Indication: BACK PAIN
     Dosage: Q6 PRN
     Route: 048
     Dates: start: 2004
  2. VALIUM [Suspect]
     Indication: MUSCLE SPASMS
     Dosage: Q6 PRN
     Route: 048
     Dates: start: 2004

REACTIONS (1)
  - Drug ineffective [None]
